FAERS Safety Report 5447024-3 (Version None)
Quarter: 2007Q3

REPORT INFORMATION
  Report Type: 
  Country: None (occurrence: None)
  Receive Date: 20070808
  Receipt Date: 20070406
  Transmission Date: 20080115
  Serious: Yes (Other)
  Sender: FDA-Public Use
  Company Number: USEN-6ZZJMW

PATIENT
  Sex: Male

DRUGS (1)
  1. AVAGARD [Suspect]
     Indication: INFECTION PROPHYLAXIS
     Dosage: 6 ML, AS NEEDED
     Dates: start: 20061001

REACTIONS (1)
  - SKIN REACTION [None]
